FAERS Safety Report 6436375-1 (Version None)
Quarter: 2009Q4

REPORT INFORMATION
  Report Type: 
  Country: None (occurrence: None)
  Receive Date: 20091111
  Receipt Date: 20091029
  Transmission Date: 20100525
  Serious: Yes (Other)
  Sender: FDA-Public Use
  Company Number: PHEH2008US02876

PATIENT
  Sex: Female
  Weight: 88.435 kg

DRUGS (35)
  1. ZOMETA [Suspect]
     Indication: NEOPLASM MALIGNANT
     Dosage: 4 MG, QMO
     Route: 042
     Dates: start: 20030101
  2. ANCEF [Concomitant]
     Dosage: 1 G, UNK
     Dates: start: 20060522
  3. ATIVAN [Concomitant]
  4. VERAPAMIL [Concomitant]
  5. ZOFRAN [Concomitant]
     Dosage: 8 MG, UNK
     Route: 042
     Dates: start: 20060523
  6. TYLENOL [Concomitant]
     Dosage: 975 MG, UNK
     Dates: start: 20060523
  7. CALCIUM GLUCONATE [Concomitant]
     Dosage: UNK
     Dates: start: 20060523
  8. PROCRIT [Concomitant]
     Dosage: 40000 U, UNK
     Dates: start: 20060523
  9. VERSED [Concomitant]
     Dosage: 1 MG, UNK
     Dates: start: 20060523
  10. FENTANYL [Concomitant]
     Dosage: 50 UG, UNK
     Dates: start: 20060523
  11. AREDIA [Suspect]
  12. ARANESP [Concomitant]
  13. CHEMOTHERAPEUTICS NOS [Concomitant]
  14. HYDROCODONE [Concomitant]
     Indication: PAIN
     Dosage: 10 MG
  15. METHADONE HCL [Concomitant]
     Indication: PAIN
     Dosage: UNK
  16. FUROSEMIDE [Concomitant]
     Dosage: UNK
  17. LORAZEPAM [Concomitant]
     Indication: ANXIETY
     Dosage: UNK
  18. KLOR-CON [Concomitant]
     Indication: BLOOD POTASSIUM
     Dosage: UNK
  19. GABAPENTIN [Concomitant]
     Dosage: UNK
  20. AMITRIPTYLINE [Concomitant]
     Indication: PAIN
     Dosage: UNK
  21. CELEXA [Concomitant]
     Indication: DEPRESSION
     Dosage: UNK
  22. DIOVAN HCT [Concomitant]
     Indication: HYPERTENSION
     Dosage: UNK
  23. CLINDAMYCIN [Concomitant]
     Dosage: UNK
  24. CYMBALTA [Concomitant]
     Dosage: 60 MG, QAM
  25. HYDROXYZINE [Concomitant]
     Dosage: 25 MG / BID
  26. DEPLIN [Concomitant]
     Dosage: 7.5 MG./ DAILY
  27. LUNESTA [Concomitant]
     Dosage: 3 MG
  28. CITALOPRAM HYDROBROMIDE [Concomitant]
     Dosage: 40 MG / DAILY
  29. MULTI-VITAMINS [Concomitant]
     Dosage: UNK
  30. VITAMIN B COMPLEX CAP [Concomitant]
     Dosage: UNK
  31. NEURONTIN [Concomitant]
     Dosage: 300 MG / BID
  32. MELPHALAN [Concomitant]
  33. THALIDOMIDE [Concomitant]
  34. PREDNISONE [Concomitant]
     Dosage: UNK
     Dates: start: 20020101
  35. DECADRON                                /CAN/ [Concomitant]
     Dosage: UNK

REACTIONS (54)
  - ABDOMINAL PAIN [None]
  - ACUTE SINUSITIS [None]
  - AFFECTIVE DISORDER [None]
  - ANAEMIA [None]
  - ANXIETY [None]
  - ARTHRALGIA [None]
  - BLADDER CYST [None]
  - BLOOD PRESSURE INCREASED [None]
  - BONE DISORDER [None]
  - BONE MARROW TRANSPLANT [None]
  - BRONCHITIS [None]
  - CARDIOMEGALY [None]
  - CONSTIPATION [None]
  - CYSTITIS [None]
  - DEPRESSION [None]
  - DIARRHOEA [None]
  - DYSPHAGIA [None]
  - EAR CONGESTION [None]
  - EMOTIONAL DISTRESS [None]
  - FACET JOINT SYNDROME [None]
  - GASTROOESOPHAGEAL REFLUX DISEASE [None]
  - GINGIVAL PAIN [None]
  - HAEMATOCHEZIA [None]
  - HEADACHE [None]
  - HYPERTENSION [None]
  - INCREASED TENDENCY TO BRUISE [None]
  - INFLUENZA [None]
  - INJURY [None]
  - INSOMNIA [None]
  - INTERVERTEBRAL DISC DEGENERATION [None]
  - LUMBAR SPINAL STENOSIS [None]
  - MALAISE [None]
  - MASTICATION DISORDER [None]
  - MONOCLONAL IMMUNOGLOBULIN PRESENT [None]
  - MULTIPLE MYELOMA [None]
  - MUSCULOSKELETAL DISCOMFORT [None]
  - NAUSEA [None]
  - NERVOUSNESS [None]
  - OEDEMA [None]
  - OSTEITIS [None]
  - OSTEONECROSIS [None]
  - OSTEOPOROSIS [None]
  - PAIN [None]
  - PAIN IN JAW [None]
  - PLEURITIC PAIN [None]
  - PSYCHOMOTOR HYPERACTIVITY [None]
  - RENAL CYST [None]
  - SCAR [None]
  - STEM CELL TRANSPLANT [None]
  - SYNCOPE [None]
  - TEMPOROMANDIBULAR JOINT SYNDROME [None]
  - THROMBOSIS IN DEVICE [None]
  - TREMOR [None]
  - VISION BLURRED [None]
